FAERS Safety Report 21224036 (Version 1)
Quarter: 2022Q3

REPORT INFORMATION
  Report Type: Spontaneous
  Country: US (occurrence: US)
  Receive Date: 20220817
  Receipt Date: 20220817
  Transmission Date: 20221027
  Serious: No
  Sender: FDA-Public Use
  Company Number: US-SA-2021MK000099

PATIENT
  Age: 57 Year
  Sex: Female

DRUGS (6)
  1. AFREZZA [Suspect]
     Active Substance: INSULIN HUMAN
     Indication: Diabetes mellitus
     Dates: start: 20200430, end: 202005
  2. AFREZZA [Suspect]
     Active Substance: INSULIN HUMAN
     Dates: start: 20200430, end: 202005
  3. AFREZZA [Suspect]
     Active Substance: INSULIN HUMAN
     Dates: start: 20200430, end: 202005
  4. AFREZZA [Suspect]
     Active Substance: INSULIN HUMAN
     Dates: start: 20200430, end: 202005
  5. LISINOPRIL [Concomitant]
     Active Substance: LISINOPRIL
     Indication: Product used for unknown indication
  6. WELLBUTRIN [Concomitant]
     Active Substance: BUPROPION HYDROCHLORIDE
     Indication: Product used for unknown indication

REACTIONS (1)
  - Asthma [Recovering/Resolving]

NARRATIVE: CASE EVENT DATE: 20200501
